FAERS Safety Report 7818257-3 (Version None)
Quarter: 2011Q4

REPORT INFORMATION
  Report Type: 
  Country: None (occurrence: None)
  Receive Date: 20111013
  Receipt Date: 20111006
  Transmission Date: 20120403
  Serious: No
  Sender: FDA-Public Use
  Company Number: 2011SP046104

PATIENT
  Age: 68 Year
  Sex: Male

DRUGS (6)
  1. FENTANYL [Concomitant]
  2. ROCURONIUM BROMIDE [Suspect]
     Indication: NEUROMUSCULAR BLOCKING THERAPY
     Dosage: IV
     Route: 042
  3. ULTIVA [Concomitant]
  4. SEVOFLURANE [Concomitant]
  5. PROPOFOL [Concomitant]
  6. GLYCERIN ENEMA (GLYCEROL) [Suspect]
     Indication: PRODUCT USED FOR UNKNOWN INDICATION

REACTIONS (4)
  - HAEMOGLOBINURIA [None]
  - HAEMATURIA [None]
  - HAEMOLYSIS [None]
  - PROCEDURAL COMPLICATION [None]
